FAERS Safety Report 5221101-4 (Version None)
Quarter: 2007Q1

REPORT INFORMATION
  Report Type: 
  Country: None (occurrence: None)
  Receive Date: 20070124
  Receipt Date: 20070115
  Transmission Date: 20070707
  Serious: Yes (Hospitalization)
  Sender: FDA-Public Use
  Company Number: 235178

PATIENT
  Age: 68 Year
  Sex: Female
  Weight: 49.4 kg

DRUGS (1)
  1. RITUXAN [Suspect]
     Indication: RHEUMATOID ARTHRITIS
     Dates: start: 20060801

REACTIONS (1)
  - CARDIAC PACEMAKER INSERTION [None]
